FAERS Safety Report 8853818 (Version 2)
Quarter: 2012Q4

REPORT INFORMATION
  Report Type: 
  Country: JP (occurrence: JP)
  Receive Date: 20121022
  Receipt Date: 20121126
  Transmission Date: 20130627
  Serious: Yes (Death, Hospitalization, Other)
  Sender: FDA-Public Use
  Company Number: PHHY2012JP093535

PATIENT
  Age: 61 Year
  Sex: Male
  Weight: 59.6 kg

DRUGS (4)
  1. IMATINIB [Suspect]
     Indication: CHRONIC MYELOID LEUKAEMIA
     Dosage: UNK
  2. IMATINIB [Suspect]
     Dosage: 400 mg, daily
  3. HYDROXYUREA [Concomitant]
     Dosage: 1 g, daily
  4. CYTOSINE ARABINOSIDE [Concomitant]

REACTIONS (10)
  - Respiratory failure [Fatal]
  - Leukocytosis [Unknown]
  - Thrombocytopenia [Unknown]
  - Chronic myeloid leukaemia [Unknown]
  - Malignant neoplasm progression [Unknown]
  - Metastases to lung [Unknown]
  - Oxygen saturation decreased [Unknown]
  - Dyspnoea [Unknown]
  - Purpura [Unknown]
  - Anaemia [Unknown]
